FAERS Safety Report 24913094 (Version 1)
Quarter: 2025Q1

REPORT INFORMATION
  Report Type: Spontaneous
  Country: US (occurrence: US)
  Receive Date: 20250201
  Receipt Date: 20250201
  Transmission Date: 20250408
  Serious: Yes (Hospitalization)
  Sender: ROCHE
  Company Number: US-ROCHE-10000193947

PATIENT
  Sex: Female

DRUGS (4)
  1. ACTEMRA [Suspect]
     Active Substance: TOCILIZUMAB
     Indication: Rheumatoid arthritis
     Route: 058
     Dates: start: 202401
  2. ACTEMRA [Suspect]
     Active Substance: TOCILIZUMAB
  3. TYMLOS PF PEN [Concomitant]
     Indication: Senile osteoporosis
  4. TYMLOS PF PEN [Concomitant]
     Indication: Pathological fracture

REACTIONS (2)
  - Femur fracture [Unknown]
  - Fall [Unknown]
